FAERS Safety Report 4291364-0 (Version None)
Quarter: 2004Q1

REPORT INFORMATION
  Report Type: 
  Country: None (occurrence: None)
  Receive Date: 20040206
  Receipt Date: 20040206
  Transmission Date: 20041129
  Serious: Yes (Other)
  Sender: FDA-Public Use
  Company Number: None

PATIENT
  Age: 38 Year
  Sex: Female
  Weight: 61.2356 kg

DRUGS (4)
  1. VIT D 50,000 IU (PLIVA) [Suspect]
     Indication: MALABSORPTION
     Dosage: ABOVE ONCE/WK PO
     Route: 048
     Dates: start: 20031210
  2. VIT D 50,000 IU (PLIVA) [Suspect]
     Indication: VITAMIN D DEFICIENCY
     Dosage: ABOVE ONCE/WK PO
     Route: 048
     Dates: start: 20031210
  3. NEXIUM [Concomitant]
  4. XANAX [Concomitant]

REACTIONS (2)
  - HEART RATE INCREASED [None]
  - URTICARIA [None]
